FAERS Safety Report 8460163-8 (Version None)
Quarter: 2012Q2

REPORT INFORMATION
  Report Type: 
  Country: None (occurrence: None)
  Receive Date: 20120323
  Receipt Date: 20111222
  Transmission Date: 20120825
  Serious: Yes (Hospitalization)
  Sender: FDA-Public Use
  Company Number: 163-21880-11101696

PATIENT
  Age: 69 Year
  Sex: Male

DRUGS (2)
  1. REVLIMID [Suspect]
     Indication: MULTIPLE MYELOMA
     Dosage: 10 MG, DAILY X 21 DAYS, PO 10 MG, DAILY X 21 DAYS, PO
     Route: 048
     Dates: start: 20111026
  2. REVLIMID [Suspect]
     Indication: MULTIPLE MYELOMA
     Dosage: 10 MG, DAILY X 21 DAYS, PO 10 MG, DAILY X 21 DAYS, PO
     Route: 048
     Dates: start: 20110925, end: 20111012

REACTIONS (5)
  - VOMITING [None]
  - HYPOVOLAEMIA [None]
  - PLATELET COUNT DECREASED [None]
  - DIARRHOEA [None]
  - GASTROINTESTINAL VIRAL INFECTION [None]
